FAERS Safety Report 5069108-4 (Version None)
Quarter: 2006Q3

REPORT INFORMATION
  Report Type: 
  Country: None (occurrence: None)
  Receive Date: 20060731
  Receipt Date: 20060718
  Transmission Date: 20061208
  Serious: Yes (Other)
  Sender: FDA-Public Use
  Company Number: 2006070036

PATIENT
  Age: 17 Year
  Sex: Male
  Weight: 23 kg

DRUGS (5)
  1. FELBATOL [Suspect]
     Indication: LENNOX-GASTAUT SYNDROME
     Dosage: 38 MG/KG/DAY
     Dates: end: 20060717
  2. CORTICOSTEROID (CORTICOSTEROIDS) [Suspect]
     Indication: ASTHMA
  3. MYSOLINE [Concomitant]
  4. KLONOPIN [Concomitant]
  5. TOPAMAX [Concomitant]

REACTIONS (6)
  - DISEASE PROGRESSION [None]
  - GASTRIC ULCER [None]
  - HAEMORRHAGE [None]
  - LENNOX-GASTAUT SYNDROME [None]
  - PYREXIA [None]
  - REFUSAL OF TREATMENT BY RELATIVE [None]
